FAERS Safety Report 8306323 (Version 10)
Quarter: 2012Q4

REPORT INFORMATION
  Report Type: 
  Country: ES (occurrence: ES)
  Receive Date: 20111222
  Receipt Date: 20121224
  Transmission Date: 20130627
  Serious: Yes (Hospitalization, Other)
  Sender: FDA-Public Use
  Company Number: ES-BIOGENIDEC-2011BI046025

PATIENT
  Age: 51 Year
  Sex: Male

DRUGS (10)
  1. TYSABRI [Suspect]
     Indication: MULTIPLE SCLEROSIS
     Route: 042
     Dates: start: 20090826, end: 20111031
  2. TEGRETOL [Concomitant]
  3. LYRICA [Concomitant]
  4. LIORESAL [Concomitant]
  5. IRENOR [Concomitant]
  6. ESERTIA [Concomitant]
  7. ENALAPRIL [Concomitant]
  8. SIMVASTATIN [Concomitant]
  9. ORFIDAL [Concomitant]
  10. DETRUSITOL [Concomitant]

REACTIONS (6)
  - Progressive multifocal leukoencephalopathy [Not Recovered/Not Resolved]
  - Immune reconstitution inflammatory syndrome [Recovered/Resolved]
  - Urinary retention [Recovered/Resolved]
  - Leukocytosis [Unknown]
  - Urinary tract infection [Unknown]
  - Constipation [Unknown]
